FAERS Safety Report 11131181 (Version 1)
Quarter: 2015Q2

REPORT INFORMATION
  Report Type: Spontaneous
  Country: US (occurrence: None)
  Receive Date: 20150521
  Receipt Date: 20150521
  Transmission Date: 20150821
  Serious: Yes (Other)
  Sender: FDA-Public Use
  Company Number: None

PATIENT
  Age: 53 Year
  Sex: Female
  Weight: 101 kg

DRUGS (1)
  1. HERCEPTIN [Suspect]
     Active Substance: TRASTUZUMAB
     Indication: BREAST CANCER
     Dosage: 831 MG, EVERY 21 DAYS
     Route: 042
     Dates: start: 20150505, end: 20150505

REACTIONS (2)
  - Infusion related reaction [None]
  - Muscle tightness [None]

NARRATIVE: CASE EVENT DATE: 20150505
